FAERS Safety Report 25907016 (Version 2)
Quarter: 2025Q4

REPORT INFORMATION
  Report Type: Report from Study
  Country: RS (occurrence: RS)
  Receive Date: 20251010
  Receipt Date: 20251013
  Transmission Date: 20260117
  Serious: Yes (Other)
  Sender: PFIZER
  Company Number: RS-PFIZER INC-PV202500119673

PATIENT
  Age: 74 Year
  Sex: Female

DRUGS (1)
  1. ELRANATAMAB [Suspect]
     Active Substance: ELRANATAMAB
     Dosage: 4TH LINE, 2 CY

REACTIONS (1)
  - Neutropenia [Unknown]
